FAERS Safety Report 6676425-0 (Version None)
Quarter: 2010Q2

REPORT INFORMATION
  Report Type: 
  Country: None (occurrence: None)
  Receive Date: 20100412
  Receipt Date: 20100331
  Transmission Date: 20101027
  Serious: Yes (Other)
  Sender: FDA-Public Use
  Company Number: PHHY2010US20563

PATIENT
  Sex: Female

DRUGS (1)
  1. RITALIN [Suspect]

REACTIONS (1)
  - LOSS OF CONSCIOUSNESS [None]
